FAERS Safety Report 6527987-5 (Version None)
Quarter: 2010Q1

REPORT INFORMATION
  Report Type: 
  Country: None (occurrence: None)
  Receive Date: 20100106
  Receipt Date: 20091230
  Transmission Date: 20100710
  Serious: Yes (Hospitalization)
  Sender: FDA-Public Use
  Company Number: US-JNJFOC-20090908682

PATIENT
  Sex: Female
  Weight: 62.6 kg

DRUGS (14)
  1. REMICADE [Suspect]
     Route: 042
  2. REMICADE [Suspect]
     Route: 042
  3. REMICADE [Suspect]
     Indication: COLITIS ULCERATIVE
     Route: 042
  4. COUMADIN [Concomitant]
     Indication: DEEP VEIN THROMBOSIS
     Route: 048
  5. MULTI-VITAMINS [Concomitant]
  6. IRON [Concomitant]
     Indication: ANAEMIA
  7. BALSALAZIDE [Concomitant]
     Indication: COLITIS ULCERATIVE
     Dosage: 750 MG TABLETS
     Route: 048
  8. CALCIUM [Concomitant]
  9. FISH OIL [Concomitant]
  10. ALIGN NOS [Concomitant]
  11. KAPIDEX [Concomitant]
     Indication: DYSPEPSIA
  12. DILTIAZEM [Concomitant]
     Indication: TACHYARRHYTHMIA
  13. DYAZIDE [Concomitant]
     Indication: HYPERTENSION
  14. PROTONIX [Concomitant]
     Indication: DYSPEPSIA

REACTIONS (5)
  - ANTICOAGULATION DRUG LEVEL BELOW THERAPEUTIC [None]
  - DEEP VEIN THROMBOSIS [None]
  - PANCREATITIS [None]
  - PHLEBITIS [None]
  - TACHYARRHYTHMIA [None]
